FAERS Safety Report 6174069-0 (Version None)
Quarter: 2009Q2

REPORT INFORMATION
  Report Type: 
  Country: None (occurrence: None)
  Receive Date: 20090430
  Receipt Date: 20080310
  Transmission Date: 20091009
  Serious: No
  Sender: FDA-Public Use
  Company Number: US-ASTRAZENECA-2008UW04860

PATIENT

DRUGS (2)
  1. NEXIUM [Suspect]
     Route: 048
     Dates: start: 20080101
  2. NEXIUM [Suspect]
     Route: 048
     Dates: start: 20080101

REACTIONS (1)
  - ABNORMAL FAECES [None]
